FAERS Safety Report 9980311 (Version 1)
Quarter: 2014Q1

REPORT INFORMATION
  Report Type: Report from Study
  Country: US (occurrence: US)
  Receive Date: 20140307
  Receipt Date: 20140307
  Transmission Date: 20141002
  Serious: No
  Sender: FDA-Public Use
  Company Number: US-ABBVIE-13P-163-1174306-00

PATIENT
  Age: 6 Year
  Sex: Female
  Weight: 22.7 kg

DRUGS (2)
  1. HUMIRA [Suspect]
     Indication: JUVENILE IDIOPATHIC ARTHRITIS
     Dates: start: 20130913
  2. LEFLUNOMIDE [Concomitant]
     Indication: JUVENILE IDIOPATHIC ARTHRITIS

REACTIONS (1)
  - Haematuria [Unknown]
